FAERS Safety Report 6092670-X (Version None)
Quarter: 2009Q1

REPORT INFORMATION
  Report Type: 
  Country: None (occurrence: None)
  Receive Date: 20090223
  Receipt Date: 20090223
  Transmission Date: 20090719
  Serious: Yes (Death)
  Sender: FDA-Public Use
  Company Number: None

PATIENT
  Age: 65 Year
  Sex: Male
  Weight: 72.5755 kg

DRUGS (1)
  1. BEVACIZUMAB (AVASTIN) IV (GENENTECH) [Suspect]
     Indication: LUNG NEOPLASM MALIGNANT
     Dosage: 15MG/KG - 105MG EVERY 3 WEEKS IV
     Route: 042
     Dates: start: 20070607, end: 20080911

REACTIONS (4)
  - ELECTROCARDIOGRAM Q WAVE ABNORMAL [None]
  - ELECTROCARDIOGRAM ST SEGMENT ELEVATION [None]
  - HYPERKALAEMIA [None]
  - RENAL FAILURE ACUTE [None]
